FAERS Safety Report 7051030-5 (Version None)
Quarter: 2010Q4

REPORT INFORMATION
  Report Type: 
  Country: None (occurrence: None)
  Receive Date: 20101019
  Receipt Date: 20101007
  Transmission Date: 20110411
  Serious: Yes (Death)
  Sender: FDA-Public Use
  Company Number: JP-JNJFOC-20100901073

PATIENT
  Sex: Male
  Weight: 76.7 kg

DRUGS (45)
  1. REMICADE [Suspect]
     Indication: BEHCET'S SYNDROME
     Route: 042
  2. REMICADE [Suspect]
     Route: 042
  3. REMICADE [Suspect]
     Route: 042
  4. REMICADE [Suspect]
     Route: 042
  5. REMICADE [Suspect]
     Route: 042
  6. REMICADE [Suspect]
     Route: 042
  7. REMICADE [Suspect]
     Route: 042
  8. STEROIDS NOS [Suspect]
     Indication: BEHCET'S SYNDROME
  9. STEROIDS NOS [Suspect]
  10. PREDONINE [Concomitant]
     Indication: BEHCET'S SYNDROME
     Route: 048
  11. PREDONINE [Concomitant]
     Route: 048
  12. PREDONINE [Concomitant]
     Route: 048
  13. PREDONINE [Concomitant]
     Route: 048
  14. MARZULENE [Concomitant]
     Route: 048
  15. NEORAL [Concomitant]
     Indication: BEHCET'S SYNDROME
     Route: 048
  16. NEORAL [Concomitant]
     Route: 048
  17. RHEUMATREX [Concomitant]
     Indication: BEHCET'S SYNDROME
     Route: 048
  18. NORVASC [Concomitant]
     Indication: HYPERTENSION
     Route: 048
  19. PRIDOL [Concomitant]
     Indication: BEHCET'S SYNDROME
     Route: 050
  20. PRIDOL [Concomitant]
     Route: 050
  21. METHOTREXATE [Concomitant]
     Indication: BEHCET'S SYNDROME
     Route: 030
  22. PREDONINE [Concomitant]
     Route: 050
  23. PREDONINE [Concomitant]
     Route: 050
  24. PREDONINE [Concomitant]
     Route: 050
  25. PREDONINE [Concomitant]
     Route: 050
  26. PREDONINE [Concomitant]
     Route: 050
  27. PREDNISOLONE [Concomitant]
  28. PREDNISOLONE [Concomitant]
  29. PREDNISOLONE [Concomitant]
  30. PREDNISOLONE [Concomitant]
  31. PREDNISOLONE [Concomitant]
  32. PREDNISOLONE [Concomitant]
  33. PREDNISOLONE [Concomitant]
  34. PREDNISOLONE [Concomitant]
  35. PREDNISOLONE [Concomitant]
  36. MYDRIN P [Concomitant]
     Route: 031
  37. BIOFERMIN [Concomitant]
     Route: 048
  38. TAGAMET [Concomitant]
     Route: 048
  39. FLUMETHOLON [Concomitant]
     Route: 048
  40. VITAMEDIN [Concomitant]
     Route: 048
  41. FOLIAMIN [Concomitant]
     Route: 048
  42. ACTONEL [Concomitant]
     Route: 048
  43. CELECOX [Concomitant]
     Route: 048
  44. HYALEIN [Concomitant]
     Route: 031
  45. MEXILETINE HYDROCHLORIDE [Concomitant]
     Route: 048

REACTIONS (12)
  - BACTERIAL TEST [None]
  - BEHCET'S SYNDROME [None]
  - DISSEMINATED INTRAVASCULAR COAGULATION [None]
  - INCREASED BRONCHIAL SECRETION [None]
  - INTERVERTEBRAL DISC PROTRUSION [None]
  - INTESTINAL PERFORATION [None]
  - PERITONITIS [None]
  - SEPTIC SHOCK [None]
  - SPINAL COMPRESSION FRACTURE [None]
  - STAPHYLOCOCCAL INFECTION [None]
  - TRACHEOSTOMY [None]
  - WOUND DEHISCENCE [None]
